FAERS Safety Report 21667388 (Version 1)
Quarter: 2022Q4

REPORT INFORMATION
  Report Type: Spontaneous
  Country: US (occurrence: None)
  Receive Date: 20221130
  Receipt Date: 20221130
  Transmission Date: 20230112
  Serious: Yes (Life-Threatening)
  Sender: FDA-Public Use
  Company Number: None

PATIENT
  Age: 74 Year
  Sex: Male
  Weight: 59.5 kg

DRUGS (2)
  1. GAMMAGARD LIQUID [Suspect]
     Active Substance: HUMAN IMMUNOGLOBULIN G
     Indication: Respiratory syncytial virus infection
     Route: 042
     Dates: start: 20221127, end: 20221127
  2. GAMMAGARD LIQUID [Suspect]
     Active Substance: HUMAN IMMUNOGLOBULIN G
     Indication: Respiratory syncytial virus infection
     Route: 042
     Dates: start: 20221127, end: 20221127

REACTIONS (10)
  - Febrile neutropenia [None]
  - Hypoxia [None]
  - Tachycardia [None]
  - Hypotension [None]
  - Superinfection [None]
  - Pneumonia bacterial [None]
  - Acute respiratory distress syndrome [None]
  - Hypoxia [None]
  - Anaphylactic reaction [None]
  - Selective IgA immunodeficiency [None]

NARRATIVE: CASE EVENT DATE: 20221127
